FAERS Safety Report 6483133-8 (Version None)
Quarter: 2009Q4

REPORT INFORMATION
  Report Type: 
  Country: None (occurrence: None)
  Receive Date: 20091123
  Receipt Date: 20090815
  Transmission Date: 20100525
  Serious: No
  Sender: FDA-Public Use
  Company Number: 8050529

PATIENT
  Age: 57 Year
  Sex: Female
  Weight: 77.3 kg

DRUGS (11)
  1. CIMZIA [Suspect]
     Indication: CROHN'S DISEASE
     Dosage: 400 MG /M SC
     Route: 058
     Dates: start: 20081229
  2. ASACOL [Concomitant]
  3. TOPROL-XL [Concomitant]
  4. ZYRTEC [Concomitant]
  5. PROMETHAZINE [Concomitant]
  6. ATARAX [Concomitant]
  7. HYOSCYAMINE [Concomitant]
  8. NASONEX [Concomitant]
  9. ASPIRIN [Concomitant]
  10. TYLENOL (CAPLET) [Concomitant]
  11. CALCITRIOL [Concomitant]

REACTIONS (3)
  - DIZZINESS [None]
  - MEMORY IMPAIRMENT [None]
  - RHEUMATOID ARTHRITIS [None]
